FAERS Safety Report 9438715 (Version 1)
Quarter: 2013Q3

REPORT INFORMATION
  Report Type: Spontaneous
  Country: TR (occurrence: TR)
  Receive Date: 20130802
  Receipt Date: 20130802
  Transmission Date: 20140515
  Serious: Yes (Death, Life-Threatening, Other)
  Sender: FDA-Public Use
  Company Number: TR-ROXANE LABORATORIES, INC.-2013-RO-01273RO

PATIENT
  Age: 31 Year
  Sex: Male

DRUGS (9)
  1. FLUCONAZOLE [Suspect]
     Indication: PROPHYLAXIS AGAINST TRANSPLANT REJECTION
     Dosage: 150 MG
     Route: 048
  2. FLUCONAZOLE [Suspect]
     Indication: PROPHYLAXIS AGAINST TRANSPLANT REJECTION
     Route: 042
  3. BASILIXIMAB [Suspect]
     Indication: IMMUNOSUPPRESSION
  4. TACROLIMUS [Suspect]
     Indication: IMMUNOSUPPRESSION
     Dosage: 10 MG
  5. MYCOPHENOLATE SODIUM [Suspect]
     Indication: IMMUNOSUPPRESSION
     Dosage: 1440 MG
  6. PREDNISOLONE [Suspect]
     Indication: IMMUNOSUPPRESSION
     Dosage: 500 MG
  7. PREDNISOLONE [Suspect]
     Dosage: 250 MG
  8. PREDNISOLONE [Suspect]
     Route: 042
  9. PIPERACILLIN-TAZOBACTAM [Suspect]
     Indication: ANTIBIOTIC PROPHYLAXIS

REACTIONS (4)
  - Disseminated intravascular coagulation [Fatal]
  - Systemic candida [Recovered/Resolved]
  - Intestine transplant rejection [Unknown]
  - Neutropenia [Recovered/Resolved]
